FAERS Safety Report 4996571-7 (Version None)
Quarter: 2006Q2

REPORT INFORMATION
  Report Type: 
  Country: None (occurrence: None)
  Receive Date: 20060505
  Receipt Date: 20060428
  Transmission Date: 20061013
  Serious: Yes (Other)
  Sender: FDA-Public Use
  Company Number: 145534USA

PATIENT
  Age: 37 Year
  Sex: Male

DRUGS (3)
  1. LOVASTATIN [Suspect]
     Indication: BLOOD CHOLESTEROL INCREASED
     Dates: start: 20060101, end: 20060313
  2. LOVASTATIN [Suspect]
     Indication: BLOOD TRIGLYCERIDES INCREASED
     Dates: start: 20060101, end: 20060313
  3. TRICOR [Concomitant]

REACTIONS (2)
  - BLINDNESS TRANSIENT [None]
  - PAPILLOEDEMA [None]
